FAERS Safety Report 7765416-4 (Version None)
Quarter: 2011Q3

REPORT INFORMATION
  Report Type: 
  Country: None (occurrence: None)
  Receive Date: 20110921
  Receipt Date: 20110914
  Transmission Date: 20111222
  Serious: Yes (Hospitalization)
  Sender: FDA-Public Use
  Company Number: CH-MERCK-1105USA03810

PATIENT
  Age: 20 Year
  Sex: Female
  Weight: 50 kg

DRUGS (4)
  1. JANUMET [Suspect]
     Route: 048
     Dates: start: 20110510, end: 20110510
  2. ESCITALOPRAM [Suspect]
     Indication: PSYCHOTIC DISORDER
     Route: 065
     Dates: start: 20101201
  3. SOLIAN [Concomitant]
     Indication: PSYCHOTIC DISORDER
     Route: 065
  4. LORAZEPAM [Concomitant]
     Indication: ANXIETY DISORDER
     Route: 065

REACTIONS (3)
  - METABOLIC ACIDOSIS [None]
  - INTENTIONAL OVERDOSE [None]
  - SUICIDE ATTEMPT [None]
